FAERS Safety Report 25613131 (Version 1)
Quarter: 2025Q3

REPORT INFORMATION
  Report Type: Spontaneous
  Country: US (occurrence: None)
  Receive Date: 20250726
  Receipt Date: 20250726
  Transmission Date: 20251021
  Serious: Yes (Hospitalization, Other)
  Sender: FDA-CTU
  Company Number: None

PATIENT
  Age: 31 Year
  Sex: Male
  Weight: 76.5 kg

DRUGS (1)
  1. LEXAPRO [Suspect]
     Active Substance: ESCITALOPRAM OXALATE
     Indication: Generalised anxiety disorder
     Dosage: FREQUENCY : DAILY;?
     Route: 048
     Dates: start: 20220808, end: 20240322

REACTIONS (19)
  - Anhedonia [None]
  - Loss of libido [None]
  - Pain [None]
  - Neuropathy peripheral [None]
  - Head discomfort [None]
  - Electric shock sensation [None]
  - Temperature intolerance [None]
  - Poor quality sleep [None]
  - Cognitive disorder [None]
  - Akathisia [None]
  - Withdrawal syndrome [None]
  - Impaired quality of life [None]
  - Impaired work ability [None]
  - Loss of personal independence in daily activities [None]
  - Exercise tolerance decreased [None]
  - Sleep disorder [None]
  - General physical health deterioration [None]
  - Renal impairment [None]
  - Blood testosterone abnormal [None]
